FAERS Safety Report 9114571 (Version 1)
Quarter: 2013Q1

REPORT INFORMATION
  Report Type: Spontaneous
  Country: US (occurrence: None)
  Receive Date: 20130220
  Receipt Date: 20130220
  Transmission Date: 20140127
  Serious: Yes (Hospitalization)
  Sender: FDA-Public Use
  Company Number: None

PATIENT
  Age: 68 Year
  Sex: Female

DRUGS (1)
  1. PROLIA [Suspect]
     Dosage: 60 MG   Q6 MONTHS   SQ?ONCE  ONLY   12/26/2012  --  12/26/2012
     Route: 058
     Dates: start: 20121226, end: 20121226

REACTIONS (4)
  - Dehydration [None]
  - Vomiting [None]
  - Diarrhoea [None]
  - White blood cell count increased [None]
